FAERS Safety Report 24360413 (Version 3)
Quarter: 2024Q4

REPORT INFORMATION
  Report Type: Report from Study
  Country: US (occurrence: US)
  Receive Date: 20240925
  Receipt Date: 20241022
  Transmission Date: 20250114
  Serious: Yes (Other)
  Sender: ABBVIE
  Company Number: US-ABBVIE-5933059

PATIENT
  Sex: Male
  Weight: 111 kg

DRUGS (2)
  1. HUMIRA [Suspect]
     Active Substance: ADALIMUMAB
     Indication: Psoriatic arthropathy
     Dosage: CITRATE FREE
     Route: 058
     Dates: start: 2017
  2. HUMIRA [Suspect]
     Active Substance: ADALIMUMAB
     Dosage: CITRATE FREE
     Route: 058
     Dates: start: 20181108

REACTIONS (19)
  - Skin hyperplasia [Recovering/Resolving]
  - Skin laceration [Not Recovered/Not Resolved]
  - Skin papilloma [Recovering/Resolving]
  - Localised infection [Recovering/Resolving]
  - Dental caries [Recovering/Resolving]
  - Hyperplasia [Recovering/Resolving]
  - Peripheral swelling [Recovering/Resolving]
  - Cellulitis [Recovering/Resolving]
  - Oedema peripheral [Recovering/Resolving]
  - Wound haemorrhage [Not Recovered/Not Resolved]
  - Nail hypertrophy [Unknown]
  - Scar [Unknown]
  - Chronic papillomatous dermatitis [Unknown]
  - Postoperative wound complication [Not Recovered/Not Resolved]
  - Jaw disorder [Not Recovered/Not Resolved]
  - Erythema [Recovering/Resolving]
  - Skin papilloma [Recovered/Resolved]
  - Immunosuppression [Unknown]
  - Osteoarthritis [Not Recovered/Not Resolved]

NARRATIVE: CASE EVENT DATE: 20180101
